FAERS Safety Report 11700272 (Version 2)
Quarter: 2017Q2

REPORT INFORMATION
  Report Type: Spontaneous
  Country: US (occurrence: US)
  Receive Date: 20151105
  Receipt Date: 20170403
  Transmission Date: 20170829
  Serious: No
  Sender: FDA-Public Use
  Company Number: US-PFIZER INC-2015364480

PATIENT
  Age: 75 Year
  Sex: Female
  Weight: 59.41 kg

DRUGS (2)
  1. IBRANCE [Suspect]
     Active Substance: PALBOCICLIB
     Indication: BREAST CANCER
     Dosage: 125 MG, CYCLIC (125 MG D1-D21 EVERY 28 DAYS)
     Route: 048
     Dates: start: 20150713, end: 20151022
  2. LETROZOLE. [Concomitant]
     Active Substance: LETROZOLE
     Dosage: UNK

REACTIONS (7)
  - Epistaxis [Unknown]
  - Hypoaesthesia [Unknown]
  - Dysgeusia [Unknown]
  - Dyspnoea [Unknown]
  - Lip disorder [Unknown]
  - Stomatitis [Unknown]
  - Headache [Unknown]
